FAERS Safety Report 13807826 (Version 1)
Quarter: 2017Q3

REPORT INFORMATION
  Report Type: Spontaneous
  Country: US (occurrence: US)
  Receive Date: 20170728
  Receipt Date: 20170728
  Transmission Date: 20171127
  Serious: Yes (Other)
  Sender: FDA-Public Use
  Company Number: US-PFIZER INC-2017321808

PATIENT
  Sex: Male

DRUGS (2)
  1. CRIZOTINIB [Suspect]
     Active Substance: CRIZOTINIB
     Indication: LUNG CARCINOMA CELL TYPE UNSPECIFIED STAGE IV
     Dosage: 250 MG, 2X/DAY
     Dates: start: 20150202
  2. ALECTINIB. [Concomitant]
     Active Substance: ALECTINIB
     Dosage: 600 MG, 2X/DAY
     Route: 048
     Dates: start: 20160720

REACTIONS (16)
  - Neoplasm progression [Unknown]
  - Angioedema [Recovered/Resolved]
  - Sinus disorder [Unknown]
  - Weight increased [Unknown]
  - Constipation [Unknown]
  - Sinusitis [Unknown]
  - Blood creatine phosphokinase increased [Recovered/Resolved]
  - Nausea [Unknown]
  - Hepatic enzyme increased [Recovering/Resolving]
  - Oropharyngeal pain [Unknown]
  - Vision blurred [Unknown]
  - Dysgeusia [Unknown]
  - Depression [Unknown]
  - Abdominal discomfort [Unknown]
  - Dizziness [Recovering/Resolving]
  - Myalgia [Unknown]
